FAERS Safety Report 8269036-7 (Version None)
Quarter: 2012Q1

REPORT INFORMATION
  Report Type: 
  Country: None (occurrence: None)
  Receive Date: 20120327
  Receipt Date: 20090807
  Transmission Date: 20120608
  Serious: Yes (Other)
  Sender: FDA-Public Use
  Company Number: PHEH2009US08972

PATIENT
  Sex: Male

DRUGS (6)
  1. LIPITOR [Concomitant]
  2. CARVEDILOL [Concomitant]
  3. ALLOPURINOL [Concomitant]
  4. NORVASC [Concomitant]
  5. GLEEVEC [Suspect]
     Indication: CHRONIC MYELOID LEUKAEMIA
     Dosage: 400 MG, QD, ORAL
     Route: 048
     Dates: start: 20060101
  6. ASPIRIN [Concomitant]

REACTIONS (2)
  - VOMITING [None]
  - EYE HAEMORRHAGE [None]
